FAERS Safety Report 7498878 (Version 3)
Quarter: 2012Q4

REPORT INFORMATION
  Report Type: 
  Country: US (occurrence: US)
  Receive Date: 20100723
  Receipt Date: 20121112
  Transmission Date: 20130627
  Serious: Yes (Death)
  Sender: FDA-Public Use
  Company Number: US-JNJFOC-20100704564

PATIENT
  Age: 4 Year
  Sex: Male

DRUGS (2)
  1. TYLENOL [Suspect]
     Route: 048
  2. TYLENOL [Suspect]
     Indication: PYREXIA
     Route: 048
     Dates: start: 20091102, end: 20091102

REACTIONS (5)
  - Cardiac arrest [Fatal]
  - Mouth haemorrhage [Fatal]
  - Epistaxis [Fatal]
  - Unresponsive to stimuli [Fatal]
  - Product quality issue [Unknown]
